FAERS Safety Report 6233925-5 (Version None)
Quarter: 2009Q2

REPORT INFORMATION
  Report Type: 
  Country: None (occurrence: None)
  Receive Date: 20090618
  Receipt Date: 20090610
  Transmission Date: 20091009
  Serious: Yes (Other)
  Sender: FDA-Public Use
  Company Number: CN-ASTRAZENECA-2009SE02473

PATIENT
  Sex: Female
  Weight: 25 kg

DRUGS (6)
  1. NEXIUM [Suspect]
     Indication: GASTRITIS
     Route: 048
     Dates: start: 20090501
  2. NEXIUM [Suspect]
     Indication: DUODENITIS
     Route: 048
     Dates: start: 20090501
  3. CIMETIDINE [Suspect]
     Indication: GASTRITIS
     Route: 048
  4. CIMETIDINE [Suspect]
     Indication: DUODENITIS
     Route: 048
  5. MIYARISAN [Suspect]
     Indication: GASTRITIS
     Route: 048
  6. MIYARISAN [Suspect]
     Indication: DUODENITIS
     Route: 048

REACTIONS (3)
  - DIZZINESS [None]
  - OFF LABEL USE [None]
  - SYNCOPE [None]
